FAERS Safety Report 9912930 (Version 1)
Quarter: 2014Q1

REPORT INFORMATION
  Report Type: Report from Study
  Country: US (occurrence: US)
  Receive Date: 20140220
  Receipt Date: 20140220
  Transmission Date: 20141002
  Serious: Yes (Other)
  Sender: FDA-Public Use
  Company Number: US-ROCHE-1352832

PATIENT
  Age: 87 Year
  Sex: Female

DRUGS (10)
  1. LUCENTIS [Suspect]
     Indication: AGE-RELATED MACULAR DEGENERATION
     Dosage: LEFT EYE
     Route: 065
  2. DEXILANT [Concomitant]
     Indication: GASTROOESOPHAGEAL REFLUX DISEASE
     Dosage: BEFORE DINNER
     Route: 048
  3. LIBRIUM [Concomitant]
     Indication: DEPRESSION
     Route: 048
  4. LISINOPRIL [Concomitant]
     Indication: BLOOD PRESSURE
     Route: 048
  5. NORVASC [Concomitant]
     Indication: BLOOD PRESSURE
     Dosage: AT BEDTIME
     Route: 048
  6. VESICARE [Concomitant]
     Dosage: HALF TABLET AT BEDTIME
     Route: 048
  7. FISH OIL [Concomitant]
     Route: 048
  8. TYLENOL [Concomitant]
     Indication: ARTHRITIS
     Route: 048
  9. ASPIRIN [Concomitant]
     Route: 048
  10. METAMUCIL [Concomitant]

REACTIONS (5)
  - Transient ischaemic attack [Recovered/Resolved]
  - Dehydration [Unknown]
  - Visual acuity reduced [Not Recovered/Not Resolved]
  - Reading disorder [Unknown]
  - Blood pressure inadequately controlled [Unknown]
